FAERS Safety Report 8663218 (Version 5)
Quarter: 2012Q4

REPORT INFORMATION
  Report Type: 
  Country: US (occurrence: US)
  Receive Date: 20120713
  Receipt Date: 20121220
  Transmission Date: 20130627
  Serious: Yes (Other)
  Sender: FDA-Public Use
  Company Number: PHEH2012US013488

PATIENT
  Age: 60 Year
  Sex: Male
  Weight: 94 kg

DRUGS (3)
  1. GILENYA [Suspect]
     Indication: RELAPSING-REMITTING MULTIPLE SCLEROSIS
     Dosage: 0.5 mg, QD
     Route: 048
     Dates: start: 20110404, end: 20120625
  2. FINASTERIDE [Concomitant]
     Dosage: 5 mg, QD
     Route: 048
     Dates: start: 20120516
  3. FLOMAX [Concomitant]
     Dosage: 0.4 mg, QD
     Dates: start: 20070402

REACTIONS (6)
  - Myocardial infarction [Recovering/Resolving]
  - Bundle branch block left [Unknown]
  - Ejection fraction decreased [Unknown]
  - Dilatation ventricular [Unknown]
  - Left ventricular dysfunction [Unknown]
  - Ventricular extrasystoles [Unknown]
